FAERS Safety Report 8062449-8 (Version None)
Quarter: 2012Q1

REPORT INFORMATION
  Report Type: 
  Country: None (occurrence: None)
  Receive Date: 20120123
  Receipt Date: 20120113
  Transmission Date: 20120608
  Serious: Yes (Other)
  Sender: FDA-Public Use
  Company Number: US-ACTELION-A-US2011-55013

PATIENT

DRUGS (2)
  1. TRACLEER [Suspect]
     Indication: PULMONARY ARTERIAL HYPERTENSION
     Dosage: UNK
     Route: 048
     Dates: start: 20081107
  2. COUMADIN [Concomitant]

REACTIONS (6)
  - ATRIAL FIBRILLATION [None]
  - ARRHYTHMIA [None]
  - FLUID RETENTION [None]
  - NASOPHARYNGITIS [None]
  - PALPITATIONS [None]
  - BRADYCARDIA [None]
